FAERS Safety Report 19191960 (Version 3)
Quarter: 2021Q4

REPORT INFORMATION
  Report Type: Spontaneous
  Country: None (occurrence: US)
  Receive Date: 20210428
  Receipt Date: 20211124
  Transmission Date: 20220303
  Serious: No
  Sender: FDA-Public Use
  Company Number: US-AKCEA THERAPEUTICS, INC.-2021IS001123

PATIENT
  Age: 73 Year
  Sex: Male

DRUGS (7)
  1. TEGSEDI [Suspect]
     Active Substance: INOTERSEN SODIUM
     Indication: Hereditary neuropathic amyloidosis
     Route: 058
     Dates: start: 20190125
  2. DEVICE [Suspect]
     Active Substance: DEVICE
  3. MIRALAX [Concomitant]
     Active Substance: POLYETHYLENE GLYCOL 3350
     Route: 065
  4. VITAMINS [Concomitant]
     Active Substance: VITAMINS
     Route: 065
  5. RETINOL [Concomitant]
     Active Substance: RETINOL
     Route: 065
  6. XARELTO [Concomitant]
     Active Substance: RIVAROXABAN
     Route: 065
  7. GREEN TEA LEAF [Concomitant]
     Active Substance: GREEN TEA LEAF
     Route: 065

REACTIONS (11)
  - Musculoskeletal stiffness [Unknown]
  - Blood pressure decreased [Unknown]
  - Nausea [Recovering/Resolving]
  - Retching [Unknown]
  - Chills [Recovering/Resolving]
  - Gastrointestinal disorder [Unknown]
  - Fatigue [Recovering/Resolving]
  - Frequent bowel movements [Recovering/Resolving]
  - Functional gastrointestinal disorder [Unknown]
  - Hypotension [Recovering/Resolving]
  - Fine motor skill dysfunction [Recovering/Resolving]
